FAERS Safety Report 22154175 (Version 5)
Quarter: 2024Q1

REPORT INFORMATION
  Report Type: Report from Study
  Country: KR (occurrence: KR)
  Receive Date: 20230330
  Receipt Date: 20240301
  Transmission Date: 20240410
  Serious: Yes (Other)
  Sender: FDA-Public Use
  Company Number: KR-CELLTRION INC.-2023KR006405

PATIENT

DRUGS (23)
  1. INFLIXIMAB [Suspect]
     Active Substance: INFLIXIMAB
     Indication: Colitis ulcerative
     Dosage: 120 MG, Q2WEEKS
     Route: 058
     Dates: start: 20220308, end: 20230315
  2. INFLIXIMAB [Suspect]
     Active Substance: INFLIXIMAB
     Dosage: UNK
     Route: 058
     Dates: start: 20220508, end: 20230510
  3. INFLIXIMAB [Suspect]
     Active Substance: INFLIXIMAB
     Indication: Colitis ulcerative
     Dosage: UNK
     Route: 042
     Dates: start: 202111
  4. INFLIXIMAB [Suspect]
     Active Substance: INFLIXIMAB
     Dosage: 300 MG
     Route: 042
     Dates: start: 20211126
  5. INFLIXIMAB [Suspect]
     Active Substance: INFLIXIMAB
     Dosage: 300 MG
     Route: 042
     Dates: start: 20211210
  6. INFLIXIMAB [Suspect]
     Active Substance: INFLIXIMAB
     Dosage: 300 MG
     Route: 042
     Dates: start: 20220107
  7. PENTASA [Concomitant]
     Active Substance: MESALAMINE
     Indication: Colitis ulcerative
     Dosage: 1 G, 1PIL, 1/DAY
     Route: 054
     Dates: start: 20210818, end: 20231029
  8. PENTASA [Concomitant]
     Active Substance: MESALAMINE
     Indication: Colitis ulcerative
     Dosage: 2G/PKG,BID
     Route: 048
     Dates: start: 20221128
  9. FERROUS SULFATE [Concomitant]
     Active Substance: FERROUS SULFATE
     Indication: Colitis ulcerative
     Dosage: 256 MG, 2 TAB, BID
     Route: 048
     Dates: start: 20230322, end: 20230404
  10. HYDROXYCHLOROQUINE SULFATE [Concomitant]
     Active Substance: HYDROXYCHLOROQUINE SULFATE
     Indication: Systemic lupus erythematosus
     Dosage: 300 MG, 1TAB, QD
     Route: 048
     Dates: start: 20230322
  11. CELEBREX [Concomitant]
     Active Substance: CELECOXIB
     Indication: Systemic lupus erythematosus
     Dosage: 200 MG, 1CAP, BID
     Route: 048
     Dates: start: 20230322, end: 20230808
  12. SOLONDO [PREDNISOLONE] [Concomitant]
     Indication: Systemic lupus erythematosus
     Dosage: 15MG, QD
     Route: 048
     Dates: start: 20230419, end: 20230517
  13. SOLONDO [PREDNISOLONE] [Concomitant]
     Dosage: 12.5 MG, QD
     Route: 048
     Dates: start: 20230518, end: 20230628
  14. SOLONDO [PREDNISOLONE] [Concomitant]
     Dosage: 10 MG, QD
     Route: 048
     Dates: start: 20230629, end: 20230809
  15. SOLONDO [PREDNISOLONE] [Concomitant]
     Dosage: 7.5 MG, QD
     Route: 048
     Dates: start: 20230810, end: 20230920
  16. SOLONDO [PREDNISOLONE] [Concomitant]
     Dosage: 5 MG, QD
     Route: 048
     Dates: start: 20230921, end: 20231115
  17. SOLONDO [PREDNISOLONE] [Concomitant]
     Dosage: 2.5 MG, QD
     Route: 048
     Dates: start: 20231116, end: 20240207
  18. SOLONDO [PREDNISOLONE] [Concomitant]
     Dosage: 2.5 MG, QOD
     Route: 048
     Dates: start: 20240208
  19. K CAB [Concomitant]
     Indication: Systemic lupus erythematosus
     Dosage: 50 MG, 1 TAB, QD
     Route: 048
     Dates: start: 20230419, end: 20230919
  20. STELARA [Concomitant]
     Active Substance: USTEKINUMAB
     Indication: Colitis ulcerative
     Dosage: 1 DF, QD
     Route: 042
     Dates: start: 20230515, end: 20230515
  21. STELARA [Concomitant]
     Active Substance: USTEKINUMAB
     Dosage: 90 MG, 1/12 WEEK
     Route: 058
     Dates: start: 20230705
  22. HYDROCORTISONE SODIUM SUCCINATE [Concomitant]
     Active Substance: HYDROCORTISONE SODIUM SUCCINATE
     Indication: Premedication
     Dosage: 1 DF, QD
     Route: 042
     Dates: start: 20230515, end: 20230515
  23. JEIL CHLORPHENIRAMINE MALEATE [Concomitant]
     Indication: Premedication
     Dosage: 1 DF, QD
     Route: 042
     Dates: start: 20230515, end: 20230515

REACTIONS (3)
  - Systemic lupus erythematosus [Recovering/Resolving]
  - Haematochezia [Recovered/Resolved]
  - Dizziness [Recovered/Resolved]

NARRATIVE: CASE EVENT DATE: 20230315
